FAERS Safety Report 10221516 (Version 9)
Quarter: 2016Q3

REPORT INFORMATION
  Report Type: Report from Study
  Country: US (occurrence: US)
  Receive Date: 20140606
  Receipt Date: 20160920
  Transmission Date: 20161109
  Serious: Yes (Other)
  Sender: FDA-Public Use
  Company Number: US-SA-2014SA073398

PATIENT
  Age: 15 Year
  Sex: Male

DRUGS (6)
  1. FABRAZYME [Suspect]
     Active Substance: AGALSIDASE BETA
     Indication: FABRY^S DISEASE
     Route: 041
     Dates: start: 20140730
  2. FABRAZYME [Suspect]
     Active Substance: AGALSIDASE BETA
     Indication: FABRY^S DISEASE
     Route: 041
     Dates: start: 20140421
  3. FABRAZYME [Suspect]
     Active Substance: AGALSIDASE BETA
     Indication: FABRY^S DISEASE
     Route: 041
     Dates: start: 20140421
  4. FABRAZYME [Suspect]
     Active Substance: AGALSIDASE BETA
     Indication: FABRY^S DISEASE
     Route: 041
  5. FABRAZYME [Suspect]
     Active Substance: AGALSIDASE BETA
     Indication: FABRY^S DISEASE
     Route: 041
     Dates: start: 20130530
  6. FABRAZYME [Suspect]
     Active Substance: AGALSIDASE BETA
     Indication: FABRY^S DISEASE
     Route: 041
     Dates: start: 20140730

REACTIONS (14)
  - Weight decreased [Not Recovered/Not Resolved]
  - Aortic disorder [Unknown]
  - Lymphadenitis [Not Recovered/Not Resolved]
  - Treatment noncompliance [Unknown]
  - Unevaluable event [Unknown]
  - Blood bilirubin increased [Unknown]
  - Gastrointestinal disorder [Not Recovered/Not Resolved]
  - Paronychia [Not Recovered/Not Resolved]
  - Blood calcium decreased [Unknown]
  - Vitamin D decreased [Unknown]
  - Pharyngitis streptococcal [Unknown]
  - Ehlers-Danlos syndrome [Unknown]
  - Crohn^s disease [Not Recovered/Not Resolved]
  - Irritable bowel syndrome [Not Recovered/Not Resolved]

NARRATIVE: CASE EVENT DATE: 2014
